FAERS Safety Report 18998128 (Version 1)
Quarter: 2021Q1

REPORT INFORMATION
  Report Type: Spontaneous
  Country: NO (occurrence: NO)
  Receive Date: 20210311
  Receipt Date: 20210311
  Transmission Date: 20210420
  Serious: Yes (Other)
  Sender: FDA-Public Use
  Company Number: NO-TEVA-2021-NO-1889017

PATIENT
  Age: 16 Year
  Sex: Male

DRUGS (2)
  1. NEURONTIN [Interacting]
     Active Substance: GABAPENTIN
     Indication: MUSCLE SPASMS
     Dosage: UNIT DOSE: 600 MILLIGRAM
     Route: 048
  2. STESOLID [Suspect]
     Active Substance: DIAZEPAM
     Indication: MUSCLE SPASMS
     Dosage: UNIT DOSE: 4 MILLIGRAM
     Route: 048

REACTIONS (2)
  - Drug interaction [Unknown]
  - Respiratory depression [Unknown]
